FAERS Safety Report 9320595 (Version 1)
Quarter: 2013Q2

REPORT INFORMATION
  Report Type: Report from Study
  Country: AU (occurrence: AU)
  Receive Date: 20130531
  Receipt Date: 20130531
  Transmission Date: 20140414
  Serious: Yes (Other)
  Sender: FDA-Public Use
  Company Number: AU-ROCHE-GNE312251

PATIENT
  Sex: Female

DRUGS (2)
  1. LUCENTIS [Suspect]
     Indication: AGE-RELATED MACULAR DEGENERATION
     Dosage: 0.05 ML, UNK
     Route: 050
  2. LUCENTIS [Suspect]
     Dosage: 0.05 ML, UNK
     Route: 050
     Dates: start: 20101220

REACTIONS (1)
  - Eye infection [Not Recovered/Not Resolved]
